FAERS Safety Report 8042265-3 (Version None)
Quarter: 2012Q1

REPORT INFORMATION
  Report Type: 
  Country: None (occurrence: None)
  Receive Date: 20120112
  Receipt Date: 20120104
  Transmission Date: 20120608
  Serious: Yes (Hospitalization)
  Sender: FDA-Public Use
  Company Number: US-ROCHE-672562

PATIENT
  Sex: Female
  Weight: 78 kg

DRUGS (7)
  1. DOCETAXEL [Suspect]
     Indication: BREAST CANCER
     Dosage: DOSE LEVEL: 75 MG/M2. DOSAGE FORM: VIALS.
     Route: 042
     Dates: start: 20091120, end: 20091204
  2. CARBOPLATIN [Suspect]
     Indication: BREAST CANCER
     Dosage: DOSE LEVEL: 6 AUC, FORM VIALS.
     Route: 042
     Dates: start: 20091120, end: 20091204
  3. DIOVAN HCT [Concomitant]
     Dosage: FREQUENCY: DAILY, NAME: DIOVAN HCTZ
  4. HERCEPTIN [Suspect]
     Indication: BREAST CANCER
     Dosage: DOSE LEVEL: 8 MG/KG. DOSAGE FORM: VIALS.STUDY DRUG ALTERED IN RESPONSE TO EVENT: UNDECIDED.
     Route: 042
     Dates: start: 20091120, end: 20091204
  5. METFORMIN HCL [Concomitant]
  6. CIPROFLOXACIN [Concomitant]
  7. AVASTIN [Suspect]
     Indication: BREAST CANCER
     Dosage: DOSE LEVEL: 15 MG/KG. FORM VIALS.
     Route: 042
     Dates: start: 20091120, end: 20091204

REACTIONS (2)
  - DEHYDRATION [None]
  - HEPATIC FUNCTION ABNORMAL [None]
